FAERS Safety Report 5664031-6 (Version None)
Quarter: 2008Q1

REPORT INFORMATION
  Report Type: 
  Country: None (occurrence: None)
  Receive Date: 20080314
  Receipt Date: 20080311
  Transmission Date: 20080703
  Serious: Yes (Hospitalization)
  Sender: FDA-Public Use
  Company Number: JP-BRISTOL-MYERS SQUIBB COMPANY-14017289

PATIENT
  Age: 64 Year
  Sex: Female

DRUGS (4)
  1. TAXOL [Suspect]
     Indication: MALIGNANT ASCITES
     Dosage: INTIALLY THE PATIENT RECEIVED 6CYC 240MG 1/1MONTH 16MAY06-26OCT06;21FEB-18JUL2007. (6 DAYS)
     Route: 041
     Dates: start: 20071002, end: 20071204
  2. TAXOL [Suspect]
     Dosage: INTIALLY THE PATIENT RECEIVED 6CYC 240MG 1/1MONTH 16MAY06-26OCT06;21FEB-18JUL2007. (6 DAYS)
     Route: 041
     Dates: start: 20071002, end: 20071204
  3. PARAPLATIN [Suspect]
     Indication: MALIGNANT ASCITES
     Dosage: INIALLY THE PATIENT RECEIVED 6CYC240 MG1/1MONTH-16MAY06-26OCT06.
     Route: 041
     Dates: start: 20070221, end: 20070718
  4. PARAPLATIN [Suspect]
     Dosage: INIALLY THE PATIENT RECEIVED 6CYC240 MG1/1MONTH-16MAY06-26OCT06.
     Route: 041
     Dates: start: 20070221, end: 20070718

REACTIONS (1)
  - NEPHROTIC SYNDROME [None]
